FAERS Safety Report 6484483-1 (Version None)
Quarter: 2009Q4

REPORT INFORMATION
  Report Type: 
  Country: None (occurrence: None)
  Receive Date: 20091209
  Receipt Date: 20091130
  Transmission Date: 20100525
  Serious: Yes (Hospitalization, Other)
  Sender: FDA-Public Use
  Company Number: PHHY2009FR52691

PATIENT
  Age: 65 Year
  Sex: Male

DRUGS (2)
  1. CYCLOSPORINE [Suspect]
     Indication: HEART TRANSPLANT
  2. CORTICOSTEROIDS [Suspect]
     Indication: HEART TRANSPLANT

REACTIONS (3)
  - LUNG NEOPLASM MALIGNANT [None]
  - PROSTATE CANCER [None]
  - SQUAMOUS CELL CARCINOMA OF SKIN [None]
